FAERS Safety Report 6375620-8 (Version None)
Quarter: 2009Q3

REPORT INFORMATION
  Report Type: 
  Country: None (occurrence: None)
  Receive Date: 20090924
  Receipt Date: 20090917
  Transmission Date: 20100115
  Serious: Yes (Hospitalization)
  Sender: FDA-Public Use
  Company Number: DE-AVENTIS-200912186DE

PATIENT
  Age: 59 Year
  Sex: Male

DRUGS (4)
  1. TAXOTERE [Suspect]
     Route: 041
     Dates: start: 20090730, end: 20090730
  2. FLUOROURACIL [Suspect]
     Route: 041
     Dates: start: 20090730, end: 20090730
  3. FOLINIC ACID [Suspect]
     Route: 041
     Dates: start: 20090730, end: 20090730
  4. OXALIPLATIN [Suspect]
     Route: 041
     Dates: start: 20090730, end: 20090730

REACTIONS (2)
  - ECZEMA [None]
  - PRURITUS [None]
